FAERS Safety Report 4765605-7 (Version None)
Quarter: 2005Q3

REPORT INFORMATION
  Report Type: 
  Country: None (occurrence: None)
  Receive Date: 20050906
  Receipt Date: 20050822
  Transmission Date: 20060218
  Serious: Yes (Other)
  Sender: FDA-Public Use
  Company Number: 2005117904

PATIENT
  Age: 47 Year
  Sex: Female

DRUGS (5)
  1. ALDACTONE [Suspect]
     Indication: CARDIAC DISORDER
     Dosage: 25 MG (ORAL)
     Route: 048
  2. LASIX [Concomitant]
  3. CARVEDILOL [Concomitant]
  4. FAMOTIDINE [Concomitant]
  5. SELBEX (TEPRENONE) [Concomitant]

REACTIONS (2)
  - AMENORRHOEA [None]
  - CERVIX CARCINOMA STAGE III [None]
